FAERS Safety Report 20930282 (Version 1)
Quarter: 2022Q2

REPORT INFORMATION
  Report Type: Spontaneous
  Country: US (occurrence: US)
  Receive Date: 20220608
  Receipt Date: 20220608
  Transmission Date: 20220720
  Serious: No
  Sender: FDA-Public Use
  Company Number: US-drreddys-SPO/USA/22/0150770

PATIENT
  Age: 70 Year
  Sex: Female

DRUGS (3)
  1. OMEPRAZOLE MAGNESIUM [Suspect]
     Active Substance: OMEPRAZOLE MAGNESIUM
     Indication: Gastrooesophageal reflux disease
     Dates: start: 20220301, end: 20220517
  2. OMEPRAZOLE [Suspect]
     Active Substance: OMEPRAZOLE
     Indication: Product used for unknown indication
  3. Centrim Multivitamin [Concomitant]
     Indication: Product used for unknown indication

REACTIONS (4)
  - Abdominal pain upper [Unknown]
  - Product use issue [Unknown]
  - Drug ineffective [Unknown]
  - Product quality issue [Unknown]
